FAERS Safety Report 5720141 (Version 2)
Quarter: 2016Q1

REPORT INFORMATION
  Report Type: Spontaneous
  Country: FR (occurrence: FR)
  Receive Date: 20050121
  Receipt Date: 20160120
  Transmission Date: 20160526
  Serious: Yes (Other)
  Sender: FDA-Public Use
  Company Number: FR-BRISTOL-MYERS SQUIBB COMPANY-12829495

PATIENT
  Sex: Female

DRUGS (4)
  1. RETROVIR [Suspect]
     Active Substance: ZIDOVUDINE
     Indication: PROPHYLAXIS
     Dosage: UNK
     Route: 042
     Dates: start: 20041209, end: 20041209
  2. VIDEX [Suspect]
     Active Substance: DIDANOSINE
     Indication: HIV INFECTION
     Dosage: UNK
     Route: 048
  3. TRANQUITAL [Suspect]
     Active Substance: HERBALS
     Indication: HIV INFECTION
     Route: 065
  4. VIRACEPT [Suspect]
     Active Substance: NELFINAVIR MESYLATE
     Indication: HIV INFECTION
     Dosage: UNK
     Route: 065

REACTIONS (6)
  - Twin pregnancy [Recovered/Resolved]
  - Maternal exposure timing unspecified [None]
  - Streptococcal infection [Unknown]
  - Caesarean section [Unknown]
  - Live birth [Unknown]
  - Premature delivery [None]

NARRATIVE: CASE EVENT DATE: 20041209
